FAERS Safety Report 4938944-4 (Version None)
Quarter: 2006Q1

REPORT INFORMATION
  Report Type: 
  Country: None (occurrence: None)
  Receive Date: 20060309
  Receipt Date: 20060228
  Transmission Date: 20060701
  Serious: Yes (Hospitalization)
  Sender: FDA-Public Use
  Company Number: GB-MERCK-0603GBR00015M

PATIENT
  Age: 32 Year
  Sex: Female

DRUGS (2)
  1. ALDOMET [Suspect]
     Indication: HYPERTENSION
     Route: 048
  2. WARFARIN [Concomitant]
     Route: 048

REACTIONS (8)
  - DRUG EXPOSURE DURING PREGNANCY [None]
  - HEADACHE [None]
  - ORTHOSTATIC HYPOTENSION [None]
  - PAPILLOEDEMA [None]
  - SUPERIOR SAGITTAL SINUS THROMBOSIS [None]
  - VISUAL DISTURBANCE [None]
  - VISUAL FIELD DEFECT [None]
  - VOMITING [None]
